FAERS Safety Report 24096461 (Version 2)
Quarter: 2025Q2

REPORT INFORMATION
  Report Type: Spontaneous
  Country: US (occurrence: US)
  Receive Date: 20240716
  Receipt Date: 20250522
  Transmission Date: 20250716
  Serious: No
  Sender: NORDIC PHARMA
  Company Number: US-NORIDC PHARMA, INC-2023US002948

PATIENT

DRUGS (1)
  1. MESALAMINE RECTAL [Suspect]
     Active Substance: MESALAMINE
     Indication: Colitis ulcerative
     Dosage: 1000 MG, DAILY (EVERY EVENING)
     Route: 054
     Dates: end: 202307

REACTIONS (2)
  - Proctalgia [Unknown]
  - Product shape issue [Unknown]
